FAERS Safety Report 10473727 (Version 1)
Quarter: 2014Q3

REPORT INFORMATION
  Report Type: Other
  Country: US (occurrence: US)
  Receive Date: 20140924
  Receipt Date: 20140924
  Transmission Date: 20150326
  Serious: Yes (Hospitalization)
  Sender: FDA-Public Use
  Company Number: US-BRISTOL-MYERS SQUIBB COMPANY-21404249

PATIENT
  Age: 60 Year
  Sex: Female

DRUGS (1)
  1. IFOSFAMIDE. [Suspect]
     Active Substance: IFOSFAMIDE
     Indication: MALIGNANT PERITONEAL NEOPLASM
     Dosage: 1DF:2500 MG/M SUP.

REACTIONS (1)
  - Status epilepticus [Unknown]
